FAERS Safety Report 19818884 (Version 1)
Quarter: 2021Q3

REPORT INFORMATION
  Report Type: Spontaneous
  Country: IT (occurrence: IT)
  Receive Date: 20210912
  Receipt Date: 20210912
  Transmission Date: 20211014
  Serious: Yes (Other)
  Sender: FDA-Public Use
  Company Number: NVSC2021IT205007

PATIENT
  Age: 72 Year
  Sex: Male

DRUGS (3)
  1. COBICISTAT [Suspect]
     Active Substance: COBICISTAT
     Indication: COVID-19 PNEUMONIA
     Dosage: UNK
     Route: 065
  2. AZITHROMYCIN DIHYDRATE. [Suspect]
     Active Substance: AZITHROMYCIN DIHYDRATE
     Indication: COVID-19 PNEUMONIA
     Dosage: UNK, UNKNOWN
     Route: 065
  3. HYDROXYCHLOROQUINE [Interacting]
     Active Substance: HYDROXYCHLOROQUINE
     Indication: COVID-19 PNEUMONIA
     Dosage: UNK, UNKNOWN
     Route: 065

REACTIONS (5)
  - Respiratory failure [Recovered/Resolved]
  - Product use in unapproved indication [Unknown]
  - Respiratory distress [Recovered/Resolved]
  - Drug interaction [Unknown]
  - Off label use [Unknown]
